FAERS Safety Report 7089855-2 (Version None)
Quarter: 2010Q4

REPORT INFORMATION
  Report Type: 
  Country: None (occurrence: None)
  Receive Date: 20101108
  Receipt Date: 20101026
  Transmission Date: 20110411
  Serious: Yes (Other)
  Sender: FDA-Public Use
  Company Number: US-AMGEN GMBH-QUU441915

PATIENT

DRUGS (2)
  1. NPLATE [Suspect]
     Indication: IDIOPATHIC THROMBOCYTOPENIC PURPURA
     Dosage: 240 A?G, QWK
     Route: 058
     Dates: start: 20090501, end: 20090519
  2. IMMUNOGLOBULIN HUMAN ANTI-RH [Concomitant]
     Dosage: UNK UNK, UNK
     Dates: start: 20051210

REACTIONS (4)
  - DRUG INEFFECTIVE [None]
  - FATIGUE [None]
  - HAEMATURIA [None]
  - SLEEP DISORDER [None]
